FAERS Safety Report 5615446-3 (Version None)
Quarter: 2008Q1

REPORT INFORMATION
  Report Type: 
  Country: None (occurrence: None)
  Receive Date: 20080206
  Receipt Date: 20080128
  Transmission Date: 20080703
  Serious: Yes (Other)
  Sender: FDA-Public Use
  Company Number: GB-ASTRAZENECA-2007GB02547

PATIENT
  Age: 322 Month
  Sex: Female
  Weight: 82.7 kg

DRUGS (5)
  1. ZOLADEX [Suspect]
     Indication: ENDOMETRIOSIS
     Route: 058
     Dates: start: 20071111
  2. FLUOXETINE [Concomitant]
     Indication: DEPRESSION
     Route: 048
  3. ALBUTEROL [Concomitant]
     Indication: ASTHMA
     Dosage: 50UG
     Route: 055
  4. ALBUTEROL [Concomitant]
     Route: 055
  5. SALMETEROL [Concomitant]
     Indication: ASTHMA
     Route: 055

REACTIONS (9)
  - ABDOMINAL PAIN UPPER [None]
  - ALOPECIA [None]
  - ARTHRALGIA [None]
  - BREAST PAIN [None]
  - DEPRESSION [None]
  - HOT FLUSH [None]
  - IRRITABILITY [None]
  - MOOD ALTERED [None]
  - VAGINAL DISCHARGE [None]
